FAERS Safety Report 12398162 (Version 1)
Quarter: 2016Q2

REPORT INFORMATION
  Report Type: Report from Study
  Country: TR (occurrence: TR)
  Receive Date: 20160524
  Receipt Date: 20160524
  Transmission Date: 20160815
  Serious: Yes (Hospitalization)
  Sender: FDA-Public Use
  Company Number: TR-ABBVIE-16P-161-1632701-00

PATIENT
  Age: 65 Year
  Sex: Female
  Weight: 73 kg

DRUGS (1)
  1. DUODOPA [Suspect]
     Active Substance: CARBIDOPA\LEVODOPA
     Indication: PARKINSON^S DISEASE
     Dosage: MD: 10ML, CD: 2.2ML, ED: 1,5ML
     Route: 050
     Dates: start: 20160427

REACTIONS (2)
  - Arteriospasm coronary [Recovered/Resolved]
  - Chest pain [Recovered/Resolved]

NARRATIVE: CASE EVENT DATE: 20160519
